FAERS Safety Report 25882177 (Version 1)
Quarter: 2025Q4

REPORT INFORMATION
  Report Type: Spontaneous
  Country: US (occurrence: US)
  Receive Date: 20251006
  Receipt Date: 20251006
  Transmission Date: 20260117
  Serious: No
  Sender: ROCHE
  Company Number: US-ROCHE-10000399333

PATIENT
  Sex: Female

DRUGS (4)
  1. ACTEMRA ACTPEN [Suspect]
     Active Substance: TOCILIZUMAB
     Indication: Giant cell arteritis
     Route: 058
  2. ACTEMRA ACTPEN [Suspect]
     Active Substance: TOCILIZUMAB
     Indication: Myalgia
  3. ACTEMRA [Suspect]
     Active Substance: TOCILIZUMAB
     Indication: Product used for unknown indication
     Route: 042
  4. PREDNISONE [Concomitant]
     Active Substance: PREDNISONE

REACTIONS (10)
  - Depression [Unknown]
  - Blood pressure increased [Unknown]
  - Heart rate irregular [Unknown]
  - Nausea [Unknown]
  - Anxiety [Unknown]
  - Pain in extremity [Unknown]
  - Arthralgia [Unknown]
  - Restless legs syndrome [Unknown]
  - Malaise [Unknown]
  - Ill-defined disorder [Unknown]
